FAERS Safety Report 9079899 (Version 2)
Quarter: 2013Q1

REPORT INFORMATION
  Report Type: Spontaneous
  Country: US (occurrence: US)
  Receive Date: 20130215
  Receipt Date: 20130222
  Transmission Date: 20140127
  Serious: Yes (Other)
  Sender: FDA-Public Use
  Company Number: US-ABBOTT-13P-163-1050860-00

PATIENT
  Age: 44 Year
  Sex: Male

DRUGS (2)
  1. NIASPAN (COATED) [Suspect]
     Indication: HYPERCHOLESTEROLAEMIA
  2. ETHANOL [Suspect]
     Indication: PRODUCT USED FOR UNKNOWN INDICATION

REACTIONS (4)
  - Delirium [Recovered/Resolved]
  - Lactic acidosis [Recovered/Resolved]
  - Blood cholesterol increased [Unknown]
  - Toxic encephalopathy [Recovered/Resolved]
